FAERS Safety Report 4991981-6 (Version None)
Quarter: 2006Q2

REPORT INFORMATION
  Report Type: 
  Country: None (occurrence: None)
  Receive Date: 20060504
  Receipt Date: 20060502
  Transmission Date: 20061013
  Serious: Yes (Other)
  Sender: FDA-Public Use
  Company Number: CA-MERCK-0605CAN00022

PATIENT
  Age: 53 Year
  Sex: Female

DRUGS (1)
  1. CANCIDAS [Suspect]
     Route: 051
     Dates: start: 20060401, end: 20060401

REACTIONS (1)
  - PANCYTOPENIA [None]
